FAERS Safety Report 25062674 (Version 1)
Quarter: 2025Q1

REPORT INFORMATION
  Report Type: Other
  Country: CA (occurrence: CA)
  Receive Date: 20250311
  Receipt Date: 20250311
  Transmission Date: 20250408
  Serious: Yes (Other)
  Sender: APOTEX
  Company Number: CA-APOTEX-2025AP002865

PATIENT
  Age: 41 Year
  Sex: Female
  Weight: 93 kg

DRUGS (5)
  1. AMOXICILLIN AND CLAVULANATE POTASSIUM [Suspect]
     Active Substance: AMOXICILLIN\CLAVULANATE POTASSIUM
     Indication: Pneumonia
     Route: 065
  2. IMURAN [Concomitant]
     Active Substance: AZATHIOPRINE
     Indication: Product used for unknown indication
     Route: 065
  3. INFLECTRA [Concomitant]
     Active Substance: INFLIXIMAB-DYYB
     Indication: Crohn^s disease
     Route: 042
  4. INFLECTRA [Concomitant]
     Active Substance: INFLIXIMAB-DYYB
     Route: 042
  5. INFLECTRA [Concomitant]
     Active Substance: INFLIXIMAB-DYYB
     Route: 042

REACTIONS (5)
  - Haemorrhoids [Unknown]
  - Anal abscess [Unknown]
  - Frequent bowel movements [Unknown]
  - Alanine aminotransferase increased [Unknown]
  - Diarrhoea [Unknown]
